FAERS Safety Report 23405976 (Version 1)
Quarter: 2024Q1

REPORT INFORMATION
  Report Type: Spontaneous
  Country: US (occurrence: None)
  Receive Date: 20240114
  Receipt Date: 20240114
  Transmission Date: 20240409
  Serious: Yes (Other)
  Sender: FDA-Public Use
  Company Number: None

PATIENT
  Age: 27 Year
  Sex: Male
  Weight: 85.5 kg

DRUGS (5)
  1. REYVOW [Suspect]
     Active Substance: LASMIDITAN
     Indication: Migraine
     Dosage: OTHER QUANTITY : 1 TABLET(S);?FREQUENCY : AS NEEDED;?
     Route: 048
  2. RISPERDAL [Concomitant]
     Active Substance: RISPERIDONE
  3. DEVICE [Concomitant]
     Active Substance: DEVICE
  4. VALPROATE [Concomitant]
     Active Substance: VALPROIC ACID
  5. GABAPENTIN [Concomitant]
     Active Substance: GABAPENTIN

REACTIONS (2)
  - Hallucination, visual [None]
  - Anxiety [None]

NARRATIVE: CASE EVENT DATE: 20240110
